FAERS Safety Report 24189603 (Version 1)
Quarter: 2024Q3

REPORT INFORMATION
  Report Type: Spontaneous
  Country: CN (occurrence: CN)
  Receive Date: 20240808
  Receipt Date: 20240808
  Transmission Date: 20241016
  Serious: Yes (Hospitalization)
  Sender: PFIZER
  Company Number: CN-PFIZER INC-PV202400101828

PATIENT
  Age: 62 Year
  Sex: Female

DRUGS (1)
  1. TIGECYCLINE [Suspect]
     Active Substance: TIGECYCLINE
     Indication: Anti-infective therapy
     Dosage: 100 MG, ONCE EVERY 12 HOURS
     Route: 041
     Dates: start: 20240724, end: 20240729

REACTIONS (3)
  - Gastrointestinal haemorrhage [Recovering/Resolving]
  - Coagulopathy [Recovering/Resolving]
  - Off label use [Unknown]

NARRATIVE: CASE EVENT DATE: 20240724
